FAERS Safety Report 21663939 (Version 1)
Quarter: 2022Q4

REPORT INFORMATION
  Report Type: Spontaneous
  Country: TW (occurrence: TW)
  Receive Date: 20221130
  Receipt Date: 20221130
  Transmission Date: 20230112
  Serious: Yes (Death)
  Sender: FDA-Public Use
  Company Number: TW-MTPC-MTPC2022-0032219

PATIENT
  Age: 55 Year
  Sex: Male

DRUGS (1)
  1. REMICADE [Suspect]
     Active Substance: INFLIXIMAB
     Indication: Crohn^s disease
     Dosage: 300 MILLIGRAM, QD
     Route: 041
     Dates: start: 20221018, end: 20221018

REACTIONS (5)
  - Crohn^s disease [Fatal]
  - Dyspnoea [Fatal]
  - Pneumonia [Fatal]
  - Pulmonary oedema [Fatal]
  - Acute respiratory distress syndrome [Fatal]

NARRATIVE: CASE EVENT DATE: 20221027
